FAERS Safety Report 11034884 (Version 4)
Quarter: 2020Q4

REPORT INFORMATION
  Report Type: Spontaneous
  Country: US (occurrence: US)
  Receive Date: 20150415
  Receipt Date: 20201126
  Transmission Date: 20210113
  Serious: Yes (Death, Other)
  Sender: FDA-Public Use
  Company Number: US-JNJFOC-20150118862

PATIENT
  Age: 76 Year
  Sex: Female

DRUGS (1)
  1. XARELTO [Suspect]
     Active Substance: RIVAROXABAN
     Indication: DEEP VEIN THROMBOSIS
     Route: 048
     Dates: start: 20140825, end: 20141008

REACTIONS (1)
  - Gastrointestinal haemorrhage [Unknown]

NARRATIVE: CASE EVENT DATE: 20141008
